FAERS Safety Report 10272572 (Version 1)
Quarter: 2014Q2

REPORT INFORMATION
  Report Type: Spontaneous
  Country: US (occurrence: None)
  Receive Date: 20140630
  Receipt Date: 20140630
  Transmission Date: 20141212
  Serious: Yes (Hospitalization)
  Sender: FDA-Public Use
  Company Number: None

PATIENT
  Age: 32 Year
  Sex: Female
  Weight: 126.1 kg

DRUGS (5)
  1. MINASTRIN 24 FE [Suspect]
     Indication: MENSTRUATION IRREGULAR
     Route: 048
  2. LIPATOR [Concomitant]
  3. MEDFORMAN [Concomitant]
  4. ALTACE [Concomitant]
  5. ASPIRIN 81 (LOW DOSE) [Concomitant]

REACTIONS (2)
  - Migraine [None]
  - Cerebrovascular accident [None]
